FAERS Safety Report 18050534 (Version 4)
Quarter: 2022Q2

REPORT INFORMATION
  Report Type: Spontaneous
  Country: DE (occurrence: DE)
  Receive Date: 20200721
  Receipt Date: 20220429
  Transmission Date: 20220720
  Serious: Yes (Life-Threatening, Hospitalization, Congenital Anomaly, Other)
  Sender: FDA-Public Use
  Company Number: DE-ROCHE-2636424

PATIENT
  Sex: Male

DRUGS (13)
  1. DOXORUBICIN [Suspect]
     Active Substance: DOXORUBICIN
     Indication: Burkitt^s lymphoma
     Dosage: OVER 30 MINUTES ON DAY 2
     Route: 064
  2. PREDNISOLONE [Suspect]
     Active Substance: PREDNISOLONE
     Indication: Burkitt^s lymphoma
     Dosage: ON DAYS 2-5 PRENATAL PHASE CYCLE
     Route: 064
  3. CYTARABINE [Suspect]
     Active Substance: CYTARABINE
     Indication: Burkitt^s lymphoma
     Dosage: ON DAYS 2 AND 6 PRENATAL PHASE
     Route: 064
  4. CYTARABINE [Suspect]
     Active Substance: CYTARABINE
     Indication: Prophylaxis
     Dosage: OVER 1 HOUR EVERY 12 HOURS ON DAYS 2-6 PRENATAL PHASE CYCLE
     Route: 064
  5. ETOPOSIDE [Suspect]
     Active Substance: ETOPOSIDE
     Indication: Burkitt^s lymphoma
     Dosage: OVER 1 HOUR ON DAYS 2-4 PRENATAL PHASE CYCLE
     Route: 064
  6. VINCRISTINE [Suspect]
     Active Substance: VINCRISTINE
     Indication: Burkitt^s lymphoma
     Dosage: 2 MILLIGRAM, CYCLE (ON DAY 2 OF 21 DAYS CYCLE)
     Route: 064
  7. CYCLOPHOSPHAMIDE [Suspect]
     Active Substance: CYCLOPHOSPHAMIDE
     Indication: Burkitt^s lymphoma
     Dosage: OVER 1 HOUR ON DAY 1 OF 21 DAYS CYCLE
     Route: 064
  8. MESNA [Suspect]
     Active Substance: MESNA
     Indication: Drug therapy
     Dosage: 200 MILLIGRAM/SQ. METER (AT 0, 4, AND 8 HOURS AFTER CPA DAY 2 PRENATAL PHASE)
     Route: 064
  9. DEXAMETHASONE [Suspect]
     Active Substance: DEXAMETHASONE
     Indication: Burkitt^s lymphoma stage IV
     Dosage: ON DAYS 2 AND 6 PRENATAL PHASE
     Route: 064
  10. DEXAMETHASONE [Suspect]
     Active Substance: DEXAMETHASONE
     Indication: Prophylaxis
  11. RITUXIMAB [Suspect]
     Active Substance: RITUXIMAB
     Indication: Burkitt^s lymphoma
     Dosage: 375 MILLIGRAM/SQ. METER, CYCLE (OVER 3 HOURS ON DAY 1 PRENATAL PHASE)
     Route: 064
  12. FILGRASTIM [Suspect]
     Active Substance: FILGRASTIM
     Indication: Drug therapy
     Dosage: ON DAYS 6-11 PRENATAL PHASE
     Route: 064
  13. GRANULOCYTE COLONY-STIMULATING FACTOR NOS [Concomitant]
     Active Substance: GRANULOCYTE COLONY-STIMULATING FACTOR NOS
     Dosage: UNK
     Route: 064

REACTIONS (15)
  - Foetal growth restriction [Unknown]
  - Bacterial infection [Recovered/Resolved]
  - Hypogammaglobulinaemia [Not Recovered/Not Resolved]
  - Low birth weight baby [Recovered/Resolved]
  - Plasmablast count increased [Unknown]
  - Foetal exposure during pregnancy [Unknown]
  - B-lymphocyte count decreased [Not Recovered/Not Resolved]
  - Infection [Recovered/Resolved]
  - Vaccine induced antibody absent [Unknown]
  - Premature baby [Unknown]
  - Small for dates baby [Unknown]
  - Combined immunodeficiency [Recovered/Resolved]
  - Plasma cells decreased [Not Recovered/Not Resolved]
  - Antibody test abnormal [Not Recovered/Not Resolved]
  - Amniotic fluid volume decreased [Recovered/Resolved]
